FAERS Safety Report 4283301-X (Version None)
Quarter: 2004Q1

REPORT INFORMATION
  Report Type: 
  Country: None (occurrence: None)
  Receive Date: 20040129
  Receipt Date: 20040116
  Transmission Date: 20041129
  Serious: Yes (Hospitalization)
  Sender: FDA-Public Use
  Company Number: 204225

PATIENT
  Age: 49 Year
  Sex: Female

DRUGS (4)
  1. HERCEPTIN [Suspect]
     Indication: BREAST CANCER
     Dosage: SEE IMAGE
     Route: 042
     Dates: start: 20030101, end: 20030101
  2. HERCEPTIN [Suspect]
     Indication: BREAST CANCER
     Dosage: SEE IMAGE
     Route: 042
     Dates: start: 20030915
  3. TAXOTERE [Suspect]
     Indication: BREAST CANCER
     Dosage: 153.3 MG, Q3W, INTRAVENOUS
     Route: 042
     Dates: start: 20030915
  4. AMIKACIN [Concomitant]

REACTIONS (1)
  - FEBRILE NEUTROPENIA [None]
